APPROVED DRUG PRODUCT: SONAZINE
Active Ingredient: CHLORPROMAZINE HYDROCHLORIDE
Strength: 100MG/ML
Dosage Form/Route: CONCENTRATE;ORAL
Application: A080983 | Product #005
Applicant: SAPTALIS PHARMACEUTICALS LLC
Approved: Approved Prior to Jan 1, 1982 | RLD: No | RS: No | Type: DISCN